FAERS Safety Report 6763542-X (Version None)
Quarter: 2010Q2

REPORT INFORMATION
  Report Type: 
  Country: None (occurrence: None)
  Receive Date: 20100610
  Receipt Date: 20100528
  Transmission Date: 20101027
  Serious: Yes (Other)
  Sender: FDA-Public Use
  Company Number: PHHY2009JP31754

PATIENT
  Sex: Male

DRUGS (18)
  1. MIKELAN LA 2% (NVO) [Suspect]
     Dosage: 1-2 GTT OU, BID
     Route: 047
     Dates: start: 20081211, end: 20090422
  2. MIKELAN LA 2% (NVO) [Suspect]
     Dosage: 1-2 GTT OU, BID
     Route: 047
     Dates: start: 20090423
  3. TACROLIMUS [Suspect]
     Indication: CONJUNCTIVITIS ALLERGIC
     Dosage: 1 GTT, BID
     Route: 047
     Dates: start: 20090226
  4. RINDERON 1 [Suspect]
     Indication: CONJUNCTIVITIS ALLERGIC
     Dosage: 2 TO 4 GTT OU/DAY
     Route: 047
     Dates: start: 20080529, end: 20090325
  5. RINDERON 1 [Suspect]
     Dosage: 1-2 GTT OS, QD
     Route: 047
     Dates: start: 20090326, end: 20090422
  6. RINDERON 1 [Suspect]
     Dosage: 1-2 GTT OU/DAY
     Route: 047
     Dates: start: 20090423, end: 20090511
  7. RINDERON 1 [Suspect]
     Dosage: 1-2 GTT OS THREE TIMES A DAY
     Route: 047
     Dates: start: 20090512, end: 20090730
  8. CELESTAMINE TAB [Suspect]
     Indication: CONJUNCTIVITIS ALLERGIC
     Dosage: 1 DF, BID
     Route: 048
     Dates: start: 20080925
  9. ZEPELIN [Concomitant]
     Dosage: UNK
     Dates: start: 20090115, end: 20090225
  10. LEVOCABASTINE [Concomitant]
     Dosage: UNK
     Dates: start: 20090115, end: 20090225
  11. PATANOL [Concomitant]
     Dosage: UNK
     Dates: start: 20090226
  12. ALDECIN-AQ- [Concomitant]
     Dosage: UNK
  13. FLUTICASONE PROPIONATE W/SALMETEROL XINAFOATE [Concomitant]
     Dosage: UNK
  14. ALLOPURINOL [Concomitant]
     Dosage: UNK
  15. KIPRES [Concomitant]
     Dosage: 10 MG, UNK
  16. UNIPHYLLIN - SLOW RELEASE [Concomitant]
     Dosage: 200 MG, UNK
  17. ALLELOCK [Concomitant]
     Dosage: 5 MG, UNK
  18. TAPROS [Concomitant]
     Dosage: UNK
     Dates: start: 20090625

REACTIONS (2)
  - INTRAOCULAR PRESSURE INCREASED [None]
  - OVERDOSE [None]
